FAERS Safety Report 14962227 (Version 2)
Quarter: 2018Q3

REPORT INFORMATION
  Report Type: Spontaneous
  Country: RO (occurrence: RO)
  Receive Date: 20180601
  Receipt Date: 20180802
  Transmission Date: 20181010
  Serious: Yes (Hospitalization, Other)
  Sender: FDA-Public Use
  Company Number: RO-TORRENT-00000062

PATIENT
  Age: 19 Year
  Sex: Female
  Weight: 45 kg

DRUGS (7)
  1. SERTRALINE [Suspect]
     Active Substance: SERTRALINE HYDROCHLORIDE
     Indication: ANOREXIA NERVOSA
     Dosage: 50 MG, BID
     Route: 065
  2. ACUTIL [Concomitant]
     Indication: PRODUCT USED FOR UNKNOWN INDICATION
     Dosage: 1 DF, DAILY, 1 TABLET PER DAY
     Route: 065
  3. MALTOFER [Concomitant]
     Indication: ANAEMIA
     Dosage: 2 DF, DAILY, TWO TABLETS PER DAY
     Route: 065
  4. VITAMIN B6 [Concomitant]
     Active Substance: PYRIDOXINE HYDROCHLORIDE
     Indication: PRODUCT USED FOR UNKNOWN INDICATION
     Dosage: INJECTABLE, INJECTION FOR TWO WEEKS
     Route: 065
  5. FERRO FOLGAMMA [Concomitant]
     Indication: ANAEMIA
     Dosage: 3 DF, DAILY, THREE TABLETS PER DAY
     Route: 065
  6. VITAMIN B1 [Concomitant]
     Active Substance: THIAMINE HYDROCHLORIDE
     Indication: PRODUCT USED FOR UNKNOWN INDICATION
     Dosage: INJECTABLE, INJECTION FOR TWO WEEKS
     Route: 065
  7. OLANZAPINE. [Suspect]
     Active Substance: OLANZAPINE
     Indication: DEPRESSION
     Dosage: UNKNOWN

REACTIONS (3)
  - Off label use [Unknown]
  - Suicide attempt [Recovered/Resolved]
  - Weight decreased [Recovered/Resolved]
